FAERS Safety Report 21425658 (Version 1)
Quarter: 2022Q4

REPORT INFORMATION
  Report Type: Spontaneous
  Country: US (occurrence: US)
  Receive Date: 20221008
  Receipt Date: 20221008
  Transmission Date: 20230112
  Serious: Yes (Hospitalization)
  Sender: FDA-Public Use
  Company Number: US-MICRO LABS LIMITED-ML2022-04964

PATIENT
  Age: 63 Year
  Sex: Female

DRUGS (2)
  1. LOSARTAN [Suspect]
     Active Substance: LOSARTAN
     Indication: Haemorrhagic fever with renal syndrome
  2. SPIRONOLACTONE [Suspect]
     Active Substance: SPIRONOLACTONE
     Indication: Haemorrhagic fever with renal syndrome
     Dosage: UP-TITRATION OF SPIRONOLACTONE

REACTIONS (1)
  - Drug ineffective [Unknown]
